FAERS Safety Report 4695194-7 (Version None)
Quarter: 2005Q2

REPORT INFORMATION
  Report Type: 
  Country: None (occurrence: None)
  Receive Date: 20050614
  Receipt Date: 20050113
  Transmission Date: 20051028
  Serious: No
  Sender: FDA-Public Use
  Company Number: USA050188293

PATIENT
  Age: 59 Year
  Sex: Male

DRUGS (6)
  1. CIALIS [Suspect]
     Indication: ERECTILE DYSFUNCTION
     Dosage: 10 MG
     Dates: start: 20050112
  2. LOPRESSOR [Concomitant]
  3. METFORMIN [Concomitant]
  4. CRESTOR [Concomitant]
  5. LISINOPRIL [Concomitant]
  6. ASPIRIN [Concomitant]

REACTIONS (1)
  - THERAPEUTIC RESPONSE DECREASED [None]
